FAERS Safety Report 5103682-4 (Version None)
Quarter: 2006Q3

REPORT INFORMATION
  Report Type: 
  Country: None (occurrence: None)
  Receive Date: 20060911
  Receipt Date: 20060911
  Transmission Date: 20061208
  Serious: No
  Sender: FDA-Public Use
  Company Number: None

PATIENT
  Sex: Female
  Weight: 77.1115 kg

DRUGS (1)
  1. ZICAM COLD REMEDY 2X MATRIXX INITATIVES [Suspect]
     Indication: ILL-DEFINED DISORDER
     Dosage: 1 ^SQUIRT^ 1 NASAL
     Route: 045
     Dates: start: 20060823, end: 20060823

REACTIONS (4)
  - AGEUSIA [None]
  - ANOSMIA [None]
  - NASAL CONGESTION [None]
  - NASAL DISCOMFORT [None]
